FAERS Safety Report 4541137-6 (Version None)
Quarter: 2004Q4

REPORT INFORMATION
  Report Type: 
  Country: None (occurrence: None)
  Receive Date: 20041228
  Receipt Date: 20041216
  Transmission Date: 20050328
  Serious: No
  Sender: FDA-Public Use
  Company Number: US014465

PATIENT
  Age: 28 Month
  Sex: Male
  Weight: 13.6079 kg

DRUGS (1)
  1. ACTIQ [Suspect]
     Dosage: 1600 UG ONCE BUCCAL
     Dates: start: 20041216, end: 20041216

REACTIONS (1)
  - ACCIDENTAL EXPOSURE [None]
